FAERS Safety Report 18967565 (Version 1)
Quarter: 2021Q1

REPORT INFORMATION
  Report Type: Spontaneous
  Country: US (occurrence: US)
  Receive Date: 20210304
  Receipt Date: 20210304
  Transmission Date: 20210420
  Serious: No
  Sender: FDA-Public Use
  Company Number: US-SA-2021SA072906

PATIENT
  Age: 20 Year
  Sex: Female

DRUGS (3)
  1. EUCRISA [Concomitant]
     Active Substance: CRISABOROLE
  2. VITAMIN C [Concomitant]
     Active Substance: ASCORBIC ACID
  3. DUPIXENT [Suspect]
     Active Substance: DUPILUMAB
     Indication: DERMATITIS ATOPIC
     Dosage: 300 MG, QOW
     Route: 058
     Dates: start: 20190522

REACTIONS (2)
  - Fatigue [Not Recovered/Not Resolved]
  - Ocular hyperaemia [Not Recovered/Not Resolved]
